FAERS Safety Report 16857810 (Version 1)
Quarter: 2019Q3

REPORT INFORMATION
  Report Type: Spontaneous
  Country: CA (occurrence: CA)
  Receive Date: 20190926
  Receipt Date: 20190926
  Transmission Date: 20191005
  Serious: Yes (Life-Threatening, Other)
  Sender: FDA-Public Use
  Company Number: PHHY2019CA222360

PATIENT
  Age: 46 Year
  Sex: Female
  Weight: 56 kg

DRUGS (18)
  1. KETAMINE HYDROCHLORIDE. [Suspect]
     Active Substance: KETAMINE HYDROCHLORIDE
     Indication: INDUCTION OF ANAESTHESIA
     Dosage: 75.0 MG, QD
     Route: 042
  2. VITAMINS NOS [Concomitant]
     Active Substance: VITAMINS
     Indication: PRODUCT USED FOR UNKNOWN INDICATION
     Dosage: UNK
     Route: 065
  3. CEFAZOLIN SODIUM. [Suspect]
     Active Substance: CEFAZOLIN SODIUM
     Indication: ANTIBIOTIC PROPHYLAXIS
     Dosage: 2.0 G, QD
     Route: 042
  4. NAPROSYN [Concomitant]
     Active Substance: NAPROXEN
     Indication: PRODUCT USED FOR UNKNOWN INDICATION
     Dosage: UNK
     Route: 065
  5. FENTANYL CITRATE. [Suspect]
     Active Substance: FENTANYL CITRATE
     Indication: INDUCTION OF ANAESTHESIA
     Dosage: 75.0 MG, QD
     Route: 042
  6. KETOROLAC [Concomitant]
     Active Substance: KETOROLAC TROMETHAMINE
     Indication: PRODUCT USED FOR UNKNOWN INDICATION
     Dosage: UNK
     Route: 065
  7. NEOSTIGMINE METHYLSULFATE. [Concomitant]
     Active Substance: NEOSTIGMINE METHYLSULFATE
     Indication: PRODUCT USED FOR UNKNOWN INDICATION
     Dosage: UNK
     Route: 030
  8. ROCURONIUM [Concomitant]
     Active Substance: ROCURONIUM BROMIDE
     Indication: PRODUCT USED FOR UNKNOWN INDICATION
     Dosage: UNK
     Route: 065
  9. MINERALS NOS [Concomitant]
     Active Substance: MINERALS
     Indication: PRODUCT USED FOR UNKNOWN INDICATION
     Dosage: UNK
     Route: 065
  10. DEXTROSE INJECTION [Suspect]
     Active Substance: DEXTROSE
     Indication: PRODUCT USED FOR UNKNOWN INDICATION
     Dosage: UNK
     Route: 042
  11. HEPARIN SODIUM. [Suspect]
     Active Substance: HEPARIN SODIUM
     Indication: PRODUCT USED FOR UNKNOWN INDICATION
     Dosage: UNK
     Route: 042
  12. DEXMEDETOMIDINE HYDROCHLORIDE. [Suspect]
     Active Substance: DEXMEDETOMIDINE HYDROCHLORIDE
     Indication: INDUCTION OF ANAESTHESIA
     Dosage: 20.0 MG, QD
     Route: 042
  13. LIDOCAINE HCL AND DEXTROSE [Suspect]
     Active Substance: DEXTROSE\LIDOCAINE HYDROCHLORIDE
     Indication: PRODUCT USED FOR UNKNOWN INDICATION
     Dosage: 20.0 MG, QD
     Route: 042
  14. DOCUSATE SODIUM. [Concomitant]
     Active Substance: DOCUSATE SODIUM
     Indication: PRODUCT USED FOR UNKNOWN INDICATION
     Dosage: UNK
     Route: 065
  15. LORAZEPAM. [Concomitant]
     Active Substance: LORAZEPAM
     Indication: PRODUCT USED FOR UNKNOWN INDICATION
     Dosage: UNK
     Route: 065
  16. PROPOFOL. [Suspect]
     Active Substance: PROPOFOL
     Indication: PRODUCT USED FOR UNKNOWN INDICATION
     Dosage: 200.0 MG, QD
     Route: 042
  17. MIDAZOLAM [Suspect]
     Active Substance: MIDAZOLAM HYDROCHLORIDE
     Indication: INDUCTION OF ANAESTHESIA
     Dosage: 2.0 MG, QD
     Route: 042
  18. IRON [Concomitant]
     Active Substance: IRON
     Indication: PRODUCT USED FOR UNKNOWN INDICATION
     Dosage: UNK
     Route: 065

REACTIONS (1)
  - Generalised tonic-clonic seizure [Recovered/Resolved]
